FAERS Safety Report 12468965 (Version 2)
Quarter: 2016Q2

REPORT INFORMATION
  Report Type: Spontaneous
  Country: US (occurrence: US)
  Receive Date: 20160615
  Receipt Date: 20160617
  Transmission Date: 20160815
  Serious: Yes (Other)
  Sender: FDA-Public Use
  Company Number: US-MDT-ADR-2016-01094

PATIENT
  Age: 24 Year
  Sex: Male

DRUGS (1)
  1. BACLOFEN. [Suspect]
     Active Substance: BACLOFEN
     Dosage: 80 MG/DAY
     Route: 037

REACTIONS (2)
  - Central nervous system infection [Unknown]
  - CNS ventriculitis [Unknown]

NARRATIVE: CASE EVENT DATE: 2016
